FAERS Safety Report 7176328-1 (Version None)
Quarter: 2010Q4

REPORT INFORMATION
  Report Type: 
  Country: None (occurrence: None)
  Receive Date: 20101220
  Receipt Date: 20101206
  Transmission Date: 20110411
  Serious: No
  Sender: FDA-Public Use
  Company Number: US-PFIZER INC-2010166211

PATIENT
  Sex: Female

DRUGS (2)
  1. EFFEXOR XR [Suspect]
     Dosage: 150 MG, 1X/DAY (75MG X 2)
  2. EFFEXOR XR [Suspect]
     Dosage: 300 MG, 1X/DAY (150MG X 2)

REACTIONS (1)
  - DEPRESSION [None]
